FAERS Safety Report 24195783 (Version 1)
Quarter: 2024Q3

REPORT INFORMATION
  Report Type: Report from Study
  Country: CO (occurrence: CO)
  Receive Date: 20240809
  Receipt Date: 20240809
  Transmission Date: 20241016
  Serious: Yes (Hospitalization, Other)
  Sender: ABBVIE
  Company Number: CO-ABBVIE-5871983

PATIENT
  Sex: Female
  Weight: 53 kg

DRUGS (6)
  1. SKYRIZI [Suspect]
     Active Substance: RISANKIZUMAB-RZAA
     Indication: Psoriasis
     Route: 058
     Dates: start: 20240626, end: 20240626
  2. IBUPROFEN [Concomitant]
     Active Substance: IBUPROFEN
     Indication: Postoperative care
     Dosage: FORM STRENGTH: 400 MILIGRAM
     Route: 048
     Dates: start: 20240805
  3. CIPROFLOXACIN [Concomitant]
     Active Substance: CIPROFLOXACIN
     Indication: Postoperative care
     Dosage: FORM STRENGTH: 500 MILIGRAM
     Route: 048
     Dates: start: 20240805
  4. ACETAMINOPHEN [Concomitant]
     Active Substance: ACETAMINOPHEN
     Indication: Postoperative care
     Dosage: FORM STRENGTH: 500 MILIGRAM
     Route: 048
     Dates: start: 20240805
  5. ESOMEPRAZOLE [Concomitant]
     Active Substance: ESOMEPRAZOLE
     Indication: Gastritis
     Dosage: 20 MILLIGRAM
     Route: 048
  6. REZYST [Concomitant]
     Indication: Postoperative care
     Dosage: 200 MILLIGRAM
     Route: 048
     Dates: start: 20240805

REACTIONS (5)
  - Cholelithiasis [Recovering/Resolving]
  - Abdominal pain [Unknown]
  - Dyspepsia [Unknown]
  - Umbilical hernia [Unknown]
  - Cholecystectomy [Unknown]

NARRATIVE: CASE EVENT DATE: 20240101
